FAERS Safety Report 10191251 (Version 1)
Quarter: 2014Q2

REPORT INFORMATION
  Report Type: Spontaneous
  Country: US (occurrence: US)
  Receive Date: 20140523
  Receipt Date: 20140523
  Transmission Date: 20141212
  Serious: Yes (Other)
  Sender: FDA-Public Use
  Company Number: CHPA2014US006860

PATIENT
  Age: 61 Year
  Sex: Male

DRUGS (3)
  1. VOLTAREN GEL [Suspect]
     Indication: ARTHRITIS
     Dosage: 2 G, BID
     Route: 061
  2. VOLTAREN GEL [Suspect]
     Indication: MUSCULOSKELETAL PAIN
  3. VOLTAREN GEL [Suspect]
     Indication: OFF LABEL USE

REACTIONS (4)
  - Joint swelling [Unknown]
  - Drug administered at inappropriate site [Unknown]
  - Drug ineffective for unapproved indication [Unknown]
  - Underdose [Unknown]
